FAERS Safety Report 25404731 (Version 2)
Quarter: 2025Q3

REPORT INFORMATION
  Report Type: Spontaneous
  Country: US (occurrence: US)
  Receive Date: 20250606
  Receipt Date: 20250702
  Transmission Date: 20251021
  Serious: No
  Sender: SUNOVION
  Company Number: US-SMPA-2025SPA006888AA

PATIENT

DRUGS (1)
  1. ORGOVYX [Suspect]
     Active Substance: RELUGOLIX
     Indication: Prostate cancer
     Dosage: 120 MG, QD
     Route: 048

REACTIONS (4)
  - Feeling abnormal [Unknown]
  - Activities of daily living decreased [Unknown]
  - Fatigue [Unknown]
  - Therapy interrupted [Unknown]
